FAERS Safety Report 5219191-8 (Version None)
Quarter: 2007Q1

REPORT INFORMATION
  Report Type: 
  Country: None (occurrence: None)
  Receive Date: 20070122
  Receipt Date: 20070112
  Transmission Date: 20070707
  Serious: Yes (Hospitalization, Other)
  Sender: FDA-Public Use
  Company Number: PTWYE138912JAN07

PATIENT
  Age: 43 Year
  Sex: Female

DRUGS (9)
  1. EFFEXOR XR [Suspect]
     Indication: DEPRESSION
     Dosage: 150 MG 1X PER 1 DAY; ORAL
     Route: 048
     Dates: start: 20060410, end: 20060504
  2. EFFEXOR XR [Suspect]
     Dosage: 75 MG 1X PER 1 DAY; ORAL
     Route: 048
     Dates: start: 20060403, end: 20060405
  3. ALPRAZOLAM [Concomitant]
  4. FLUOXETINE HYDROCHLORIDE [Concomitant]
  5. SALBUTAMOL SULFATE [Concomitant]
  6. FLUTICASONE PROPIONATE [Concomitant]
  7. CETIRIZINE HCL [Concomitant]
  8. OMEPRAZOLE [Concomitant]
  9. TRAZODONE HYDROCHLORIDE [Concomitant]

REACTIONS (3)
  - RASH PAPULAR [None]
  - REFUSAL OF TREATMENT BY PATIENT [None]
  - TOXIC SKIN ERUPTION [None]
